FAERS Safety Report 8165199-2 (Version None)
Quarter: 2012Q1

REPORT INFORMATION
  Report Type: 
  Country: None (occurrence: None)
  Receive Date: 20120227
  Receipt Date: 20120224
  Transmission Date: 20120608
  Serious: No
  Sender: FDA-Public Use
  Company Number: US-PFIZER INC-2012049945

PATIENT
  Sex: Female
  Weight: 79.365 kg

DRUGS (6)
  1. DIAZEPAM [Concomitant]
     Indication: ANXIETY
  2. SEROQUEL [Concomitant]
     Indication: PSYCHOTIC DISORDER
     Dosage: UNK
  3. DIAZEPAM [Concomitant]
     Indication: PANIC ATTACK
     Dosage: UNK, AS NEEDED
  4. DEPAKOTE [Concomitant]
     Indication: BIPOLAR DISORDER
     Dosage: UNK
  5. CHANTIX [Suspect]
     Indication: SMOKING CESSATION THERAPY
     Dosage: 0.5 MG, 1X/DAY
     Route: 048
     Dates: start: 20120201
  6. OXYCODONE [Concomitant]
     Indication: PAIN
     Dosage: UNK

REACTIONS (4)
  - NAUSEA [None]
  - HYPERPHAGIA [None]
  - WEIGHT INCREASED [None]
  - ABNORMAL DREAMS [None]
